FAERS Safety Report 10191023 (Version 1)
Quarter: 2014Q2

REPORT INFORMATION
  Report Type: Spontaneous
  Country: GB (occurrence: GB)
  Receive Date: 20140523
  Receipt Date: 20140523
  Transmission Date: 20141212
  Serious: Yes (Other)
  Sender: FDA-Public Use
  Company Number: GB-JNJFOC-20140509599

PATIENT
  Sex: 0

DRUGS (9)
  1. DARUNAVIR [Suspect]
     Indication: HIV INFECTION
     Route: 048
  2. ETRAVIRINE [Suspect]
     Indication: HIV INFECTION
     Route: 048
  3. RITONAVIR [Suspect]
     Indication: HIV INFECTION
     Route: 065
  4. MARAVIROC [Suspect]
     Indication: HIV INFECTION
     Route: 065
  5. ATAZANAVIR [Suspect]
     Indication: HIV INFECTION
     Route: 065
  6. RALTEGRAVIR [Suspect]
     Indication: HIV INFECTION
     Route: 065
  7. TRUVADA [Suspect]
     Indication: PRODUCT USED FOR UNKNOWN INDICATION
     Route: 065
  8. LAMIVUDINE [Suspect]
     Indication: PRODUCT USED FOR UNKNOWN INDICATION
     Route: 065
  9. NUCLEOSIDE REVERSE TRANSCRIPTASE INHIBITORS [Suspect]
     Indication: PRODUCT USED FOR UNKNOWN INDICATION
     Route: 065

REACTIONS (5)
  - Virologic failure [Unknown]
  - Toxicity to various agents [Unknown]
  - Proteinuria [Unknown]
  - Rash [Unknown]
  - Hyperlipidaemia [Unknown]
